APPROVED DRUG PRODUCT: SELEGILINE HYDROCHLORIDE
Active Ingredient: SELEGILINE HYDROCHLORIDE
Strength: 5MG
Dosage Form/Route: CAPSULE;ORAL
Application: A075145 | Product #001
Applicant: LANNETT CO INC
Approved: Sep 15, 2003 | RLD: No | RS: No | Type: DISCN